FAERS Safety Report 10714126 (Version 2)
Quarter: 2015Q1

REPORT INFORMATION
  Report Type: Spontaneous
  Country: US (occurrence: US)
  Receive Date: 20150115
  Receipt Date: 20150317
  Transmission Date: 20150721
  Serious: Yes (Hospitalization)
  Sender: FDA-Public Use
  Company Number: US-PFIZER INC-2015014865

PATIENT
  Age: 51 Year
  Sex: Male
  Weight: 82 kg

DRUGS (4)
  1. METRONIDAZOLE. [Concomitant]
     Active Substance: METRONIDAZOLE
     Dosage: UNK
  2. PANTOPRAZOLE [Suspect]
     Active Substance: PANTOPRAZOLE SODIUM
     Dosage: 40 MG, 2X/DAY
  3. FOLIC ACID (FOLATE) [Concomitant]
     Dosage: UNK
  4. CARAFATE [Concomitant]
     Active Substance: SUCRALFATE
     Dosage: 1G/10ML (NOT SPECIFIED)

REACTIONS (2)
  - Poisoning [Unknown]
  - Peripheral swelling [Not Recovered/Not Resolved]

NARRATIVE: CASE EVENT DATE: 201501
